FAERS Safety Report 14560537 (Version 2)
Quarter: 2018Q1

REPORT INFORMATION
  Report Type: Spontaneous
  Country: JP (occurrence: JP)
  Receive Date: 20180222
  Receipt Date: 20180320
  Transmission Date: 20180509
  Serious: Yes (Hospitalization)
  Sender: FDA-Public Use
  Company Number: JP-TAKEDA-2018TJP005373

PATIENT
  Age: 41 Year
  Sex: Female

DRUGS (4)
  1. CLONAZEPAM. [Suspect]
     Active Substance: CLONAZEPAM
     Indication: PRODUCT USED FOR UNKNOWN INDICATION
     Dosage: 8 MG, UNK
     Route: 048
  2. OLANZAPINE. [Suspect]
     Active Substance: OLANZAPINE
     Indication: PRODUCT USED FOR UNKNOWN INDICATION
     Dosage: 660 MG, UNK
     Route: 048
  3. ROZEREM [Suspect]
     Active Substance: RAMELTEON
     Indication: PRODUCT USED FOR UNKNOWN INDICATION
     Dosage: 40 MG, UNK
     Route: 048
  4. BROMAZEPAM [Suspect]
     Active Substance: BROMAZEPAM
     Indication: PRODUCT USED FOR UNKNOWN INDICATION
     Dosage: 3 MG, UNK
     Route: 048

REACTIONS (8)
  - Blood pressure decreased [Recovering/Resolving]
  - Altered state of consciousness [Recovering/Resolving]
  - Hallucination [Unknown]
  - Somnolence [Unknown]
  - Pyrexia [Unknown]
  - Hallucination, visual [Unknown]
  - Miosis [Unknown]
  - Intentional overdose [Unknown]
